FAERS Safety Report 21729905 (Version 1)
Quarter: 2022Q4

REPORT INFORMATION
  Report Type: Report from Study
  Country: CN (occurrence: CN)
  Receive Date: 20221214
  Receipt Date: 20221214
  Transmission Date: 20230113
  Serious: Yes (Hospitalization, Other)
  Sender: FDA-Public Use
  Company Number: CN-BRISTOL-MYERS SQUIBB COMPANY-2022-149297

PATIENT
  Age: 51 Year
  Sex: Male
  Weight: 55 kg

DRUGS (12)
  1. IPILIMUMAB [Suspect]
     Active Substance: IPILIMUMAB
     Indication: Non-small cell lung cancer
     Dosage: DOSE DELAYED?THE PATIENT RECEIVED HIS MOST RECENT DOSE ON 26-OCT-2022
     Route: 042
     Dates: start: 20220914
  2. CARBOPLATIN [Suspect]
     Active Substance: CARBOPLATIN
     Indication: Non-small cell lung cancer
     Dosage: DOSE DELAYED
     Dates: start: 20220610, end: 20220610
  3. CARBOPLATIN [Suspect]
     Active Substance: CARBOPLATIN
     Dates: start: 20220719, end: 20220719
  4. PACLITAXEL [Suspect]
     Active Substance: PACLITAXEL
     Indication: Non-small cell lung cancer
     Dosage: DOSE DELAYED
     Dates: start: 20220610, end: 20220610
  5. PACLITAXEL [Suspect]
     Active Substance: PACLITAXEL
     Dates: start: 20220719, end: 20220719
  6. COMBINED BIFIDOBACTERIUM ,LACTOBACILLUS,ENTEROCOCCUS AND BACILLUS [Concomitant]
     Indication: Product used for unknown indication
     Dosage: EVERY 8 HOURS
     Route: 048
     Dates: start: 20220701
  7. CLOSTRIDIUM BUTYRICUM CAPSULE,LIVE [Concomitant]
     Indication: Product used for unknown indication
     Dosage: EVERY 12 HOURS
     Route: 048
     Dates: start: 20220718
  8. CALCIUM VITAMIN D VITAMIN K SOFTGELS [Concomitant]
     Indication: Product used for unknown indication
     Dosage: EVERY 24 HOURS
     Route: 048
     Dates: start: 20220715
  9. KANGFUXIN SOLUTION [Concomitant]
     Indication: Radiation oesophagitis
     Dosage: 1 DOSAGE FORM= 10 UNIT NOT SPECIFIED, EVERY 24 HOURS
     Route: 048
     Dates: start: 20220713
  10. LEVOFLOXACIN [Concomitant]
     Active Substance: LEVOFLOXACIN
     Indication: Pneumonia
     Dosage: EVERY 24 HOURS
     Route: 048
     Dates: start: 20220804
  11. DIETARY SUPPLEMENT [Concomitant]
     Active Substance: DIETARY SUPPLEMENT
     Indication: Decreased appetite
     Dosage: 3 TIMES PER DAY
     Route: 048
     Dates: start: 20220809
  12. LIPASE [Concomitant]
     Active Substance: LIPASE
     Indication: Decreased appetite
     Dosage: 3 TIMES PER DAY
     Route: 048
     Dates: start: 20220809

REACTIONS (1)
  - Radiation pneumonitis [Recovering/Resolving]

NARRATIVE: CASE EVENT DATE: 20221129
